FAERS Safety Report 4664166-0 (Version None)
Quarter: 2005Q2

REPORT INFORMATION
  Report Type: 
  Country: None (occurrence: None)
  Receive Date: 20050516
  Receipt Date: 20050516
  Transmission Date: 20051028
  Serious: Yes (Death, Life-Threatening, Hospitalization)
  Sender: FDA-Public Use
  Company Number: None

PATIENT
  Age: 53 Year
  Sex: Male
  Weight: 106 kg

DRUGS (13)
  1. WARFARIN     5MG [Suspect]
     Indication: ATRIAL FIBRILLATION
     Dosage: 7.5MG/5MG   MWF/STTS  ORAL
     Route: 048
     Dates: start: 20040308, end: 20040426
  2. CLOPIDOGREL    75MG [Suspect]
     Indication: ANTICOAGULANT THERAPY
     Dosage: 75MG   QD    ORAL
     Route: 048
     Dates: start: 20031220, end: 20040426
  3. CLOPIDOGREL    75MG [Suspect]
     Indication: STENT PLACEMENT
     Dosage: 75MG   QD    ORAL
     Route: 048
     Dates: start: 20031220, end: 20040426
  4. METOPROLOL [Concomitant]
  5. PLAVIX [Concomitant]
  6. ASPIRIN [Concomitant]
  7. PRILOSEC [Concomitant]
  8. HYTRIN [Concomitant]
  9. MEVACOR [Concomitant]
  10. LASIX [Concomitant]
  11. COUMADIN [Concomitant]
  12. PERCOCET [Concomitant]
  13. INDOMETHACIN [Concomitant]

REACTIONS (2)
  - FALL [None]
  - HAEMORRHAGE INTRACRANIAL [None]
